FAERS Safety Report 23562234 (Version 3)
Quarter: 2024Q2

REPORT INFORMATION
  Report Type: Spontaneous
  Country: JP (occurrence: JP)
  Receive Date: 20240226
  Receipt Date: 20240401
  Transmission Date: 20240716
  Serious: Yes (Other)
  Sender: FDA-Public Use
  Company Number: JP-ASTELLAS-2024JP001171

PATIENT
  Age: 43 Year
  Sex: Female

DRUGS (9)
  1. ZOLPIDEM TARTRATE [Suspect]
     Active Substance: ZOLPIDEM TARTRATE
     Dosage: 5 MG
     Route: 048
     Dates: start: 2022
  2. TULOBUTEROL HYDROCHLORIDE [Suspect]
     Active Substance: TULOBUTEROL HYDROCHLORIDE
     Indication: Product used for unknown indication
     Dosage: UNK
     Route: 065
  3. PREDNISOLONE [Suspect]
     Active Substance: PREDNISOLONE
     Indication: Collagen disorder
     Dosage: UNK
     Route: 048
  4. BIPERIDEN [Suspect]
     Active Substance: BIPERIDEN
     Indication: Mental disorder
     Dosage: UNK
     Route: 048
  5. RISPERDAL [Suspect]
     Active Substance: RISPERIDONE
     Indication: Mental disorder
     Dosage: UNK
     Route: 048
  6. GLYCYRRHIZA [Suspect]
     Active Substance: LICORICE
     Indication: Product used for unknown indication
     Dosage: UNK
     Route: 048
  7. HERBALS [Suspect]
     Active Substance: HERBALS
     Indication: Product used for unknown indication
     Dosage: UNK
     Route: 048
  8. ACTEMRA [Suspect]
     Active Substance: TOCILIZUMAB
     Indication: Collagen disorder
     Dosage: UNK
     Route: 048
  9. NEXIUM [Suspect]
     Active Substance: ESOMEPRAZOLE MAGNESIUM
     Indication: Collagen disorder
     Dosage: UNK
     Route: 048

REACTIONS (8)
  - Eye luxation [Not Recovered/Not Resolved]
  - Dizziness [Not Recovered/Not Resolved]
  - Somnolence [Not Recovered/Not Resolved]
  - Dyspnoea [Not Recovered/Not Resolved]
  - Physical deconditioning [Not Recovered/Not Resolved]
  - Malaise [Unknown]
  - Malaise [Not Recovered/Not Resolved]
  - Nasopharyngitis [Not Recovered/Not Resolved]

NARRATIVE: CASE EVENT DATE: 20240214
